FAERS Safety Report 6065647-8 (Version None)
Quarter: 2009Q1

REPORT INFORMATION
  Report Type: 
  Country: None (occurrence: None)
  Receive Date: 20090130
  Receipt Date: 20090116
  Transmission Date: 20090719
  Serious: Yes (Disabling)
  Sender: FDA-Public Use
  Company Number: 2009AL000369

PATIENT
  Sex: Male

DRUGS (1)
  1. FEVERALL [Suspect]

REACTIONS (1)
  - HEADACHE [None]
